FAERS Safety Report 20143988 (Version 1)
Quarter: 2021Q4

REPORT INFORMATION
  Report Type: Spontaneous
  Country: US (occurrence: US)
  Receive Date: 20211203
  Receipt Date: 20211203
  Transmission Date: 20220303
  Serious: Yes (Other)
  Sender: FDA-Public Use
  Company Number: US-AUROBINDO-AUR-APL-2021-049214

PATIENT
  Age: 57 Year
  Sex: Female

DRUGS (14)
  1. METHYLPREDNISOLONE [Suspect]
     Active Substance: METHYLPREDNISOLONE
     Indication: Myocarditis
     Dosage: 125 MILLIGRAM (DAILY FOR 4 DAYS)
     Route: 065
  2. METHYLPREDNISOLONE [Suspect]
     Active Substance: METHYLPREDNISOLONE
     Dosage: 125 MILLIGRAM (DAILY FOR 12 DAYS)
     Route: 065
  3. METHYLPREDNISOLONE [Suspect]
     Active Substance: METHYLPREDNISOLONE
     Dosage: 500 MILLIGRAM, DAILY
     Route: 065
  4. PREDNISONE [Suspect]
     Active Substance: PREDNISONE
     Indication: Myocarditis
     Dosage: 1 MILLIGRAM/KILOGRAM (TAPERED DAILY OVER A PERIOD OF 1 MONTH)
     Route: 048
  5. PREDNISONE [Suspect]
     Active Substance: PREDNISONE
     Dosage: 10 MILLIGRAM, DAILY (FOR 5 MONTHS)
     Route: 048
  6. PREDNISONE [Suspect]
     Active Substance: PREDNISONE
     Dosage: 1 MILLIGRAM/KILOGRAM
     Route: 048
  7. PREDNISONE [Suspect]
     Active Substance: PREDNISONE
     Dosage: 1 MILLIGRAM/KILOGRAM
     Route: 048
  8. PREDNISONE [Suspect]
     Active Substance: PREDNISONE
     Dosage: 30 MILLIGRAM
     Route: 048
  9. NIVOLUMAB [Suspect]
     Active Substance: NIVOLUMAB
     Indication: Myocarditis
     Dosage: 1 MILLIGRAM/KILOGRAM
     Route: 065
  10. NIVOLUMAB [Suspect]
     Active Substance: NIVOLUMAB
     Dosage: 240 MILLIGRAM (ADMINISTERED ONCE)
     Route: 065
  11. IPILIMUMAB [Suspect]
     Active Substance: IPILIMUMAB
     Indication: Myocarditis
     Dosage: 3 MILLIGRAM/KILOGRAM
     Route: 065
  12. MYCOPHENOLATE SODIUM [Suspect]
     Active Substance: MYCOPHENOLATE SODIUM
     Indication: Myocarditis
     Dosage: 800 MILLIGRAM/SQ. METER, TWO TIMES A DAY
     Route: 065
  13. TACROLIMUS [Suspect]
     Active Substance: TACROLIMUS
     Indication: Myocarditis
     Dosage: Q0.08 MILLIGRAM/KILOGRAM, TWO TIMES A DAY
     Route: 048
  14. INFLIXIMAB [Suspect]
     Active Substance: INFLIXIMAB
     Indication: Myocarditis
     Dosage: UNK
     Route: 065

REACTIONS (2)
  - Drug ineffective [Unknown]
  - Gastrointestinal toxicity [Unknown]
